FAERS Safety Report 23021182 (Version 2)
Quarter: 2023Q4

REPORT INFORMATION
  Report Type: Spontaneous
  Country: JP (occurrence: JP)
  Receive Date: 20231003
  Receipt Date: 20231227
  Transmission Date: 20240110
  Serious: Yes (Other)
  Sender: FDA-Public Use
  Company Number: JP-AMGEN-JPNSP2023170833

PATIENT
  Age: 70 Year
  Sex: Female

DRUGS (3)
  1. EVENITY [Suspect]
     Active Substance: ROMOSOZUMAB-AQQG
     Indication: Osteoporosis
     Dosage: 210 MILLIGRAM
     Route: 058
  2. EVENITY [Suspect]
     Active Substance: ROMOSOZUMAB-AQQG
  3. DENOSUMAB [Suspect]
     Active Substance: DENOSUMAB
     Indication: Product used for unknown indication
     Dosage: UNK
     Route: 065

REACTIONS (9)
  - Spinal compression fracture [Unknown]
  - Dental implantation [Unknown]
  - Tooth abscess [Recovering/Resolving]
  - Eye swelling [Unknown]
  - Urticaria [Unknown]
  - Feeling abnormal [Unknown]
  - Malaise [Unknown]
  - Nasal mucosal disorder [Unknown]
  - Ocular discomfort [Unknown]
